FAERS Safety Report 7549000-3 (Version None)
Quarter: 2011Q2

REPORT INFORMATION
  Report Type: 
  Country: None (occurrence: None)
  Receive Date: 20110615
  Receipt Date: 20110602
  Transmission Date: 20111010
  Serious: Yes (Hospitalization)
  Sender: FDA-Public Use
  Company Number: US-ROCHE-780624

PATIENT
  Sex: Male
  Weight: 108 kg

DRUGS (9)
  1. ATENOLOL [Concomitant]
     Dates: start: 20070316
  2. LISINOPRIL [Concomitant]
     Dates: start: 20100409
  3. HYDROXYCHLOROQUINE SULFATE [Concomitant]
     Dosage: DRUG NAME REPORTED AS HYDROCHLOROQUINE.
  4. TOCILIZUMAB [Suspect]
     Indication: RHEUMATOID ARTHRITIS
     Dosage: LAST DOSE PROIR TO SAE ON: 24 MAY 2011, FORM: LIQUID.
     Route: 042
     Dates: start: 20060919
  5. TOCILIZUMAB [Suspect]
     Dosage: THE PATIENT WAS PREVIOUSLY ENROLLED IN WA18063 AND RECEIVED TREATMENT WITH TOCILIZUMAB.
     Route: 065
  6. FOLIC ACID [Concomitant]
     Dates: start: 20040801
  7. SULFASALAZINE [Concomitant]
     Dates: start: 20050601
  8. PRILOSEC [Concomitant]
     Dates: start: 20050901
  9. PRAVASTATIN [Concomitant]
     Dates: start: 20080102

REACTIONS (1)
  - PULMONARY EMBOLISM [None]
